FAERS Safety Report 22119503 (Version 1)
Quarter: 2023Q1

REPORT INFORMATION
  Report Type: Spontaneous
  Country: US (occurrence: None)
  Receive Date: 20230320
  Receipt Date: 20230320
  Transmission Date: 20230418
  Serious: Yes (Hospitalization, Disabling)
  Sender: FDA-Public Use
  Company Number: None

PATIENT
  Age: 53 Year
  Sex: Female
  Weight: 157.5 kg

DRUGS (12)
  1. METHYLPREDNISOLONE 4MG [Suspect]
     Active Substance: METHYLPREDNISOLONE
     Indication: Laryngitis
     Dosage: OTHER QUANTITY : 21 TABLET(S);?
     Route: 048
     Dates: start: 20221030, end: 20221119
  2. ATORVASTATIN [Concomitant]
     Active Substance: ATORVASTATIN
  3. BASAGLAR [Concomitant]
     Active Substance: INSULIN GLARGINE
  4. LOSARTAN [Concomitant]
     Active Substance: LOSARTAN
  5. BUSPAR [Concomitant]
     Active Substance: BUSPIRONE HYDROCHLORIDE
  6. MOUNJARO [Concomitant]
     Active Substance: TIRZEPATIDE
  7. Hydrocholorothizide [Concomitant]
  8. BUPROPION [Concomitant]
     Active Substance: BUPROPION
  9. RISPERIDONE [Concomitant]
     Active Substance: RISPERIDONE
  10. BUSPIRONE [Concomitant]
     Active Substance: BUSPIRONE HYDROCHLORIDE
  11. POTASSIUM GLUCONATE [Concomitant]
     Active Substance: POTASSIUM GLUCONATE
  12. PREDNISONE [Suspect]
     Active Substance: PREDNISONE

REACTIONS (2)
  - Feeling abnormal [None]
  - Psychotic disorder [None]

NARRATIVE: CASE EVENT DATE: 20221030
